FAERS Safety Report 9447699 (Version 2)
Quarter: 2013Q3

REPORT INFORMATION
  Report Type: Spontaneous
  Country: US (occurrence: US)
  Receive Date: 20130808
  Receipt Date: 20130821
  Transmission Date: 20140515
  Serious: Yes (Other)
  Sender: FDA-Public Use
  Company Number: US-BAYER-2013-095020

PATIENT
  Age: 22 Year
  Sex: Female

DRUGS (2)
  1. YASMIN [Suspect]
  2. ADDERALL [Concomitant]
     Dosage: 10 MG, UNK

REACTIONS (1)
  - Subclavian vein thrombosis [Recovered/Resolved]
